FAERS Safety Report 6550233-3 (Version None)
Quarter: 2010Q1

REPORT INFORMATION
  Report Type: 
  Country: None (occurrence: None)
  Receive Date: 20100125
  Receipt Date: 20100121
  Transmission Date: 20100710
  Serious: Yes (Hospitalization)
  Sender: FDA-Public Use
  Company Number: GXKR2010DE00980

PATIENT
  Age: 65 Year
  Sex: Female

DRUGS (12)
  1. PREDNIHEXAL (NGX) [Suspect]
     Indication: POLYMYALGIA RHEUMATICA
     Dosage: 20 MG/DAILY
     Route: 048
     Dates: start: 20090801
  2. PREDNIHEXAL (NGX) [Suspect]
     Dosage: 10 MG/DAILY
     Dates: start: 20090901
  3. PREDNIHEXAL (NGX) [Suspect]
     Dosage: 5 MG/DAILY
     Dates: start: 20091101
  4. INSULIN HUMAN [Concomitant]
  5. HUMALOG [Concomitant]
  6. METFORMIN [Concomitant]
  7. SIMVASTATIN [Concomitant]
  8. MOXONIDINE [Concomitant]
  9. METOPROLOL TARTRATE [Concomitant]
  10. RAMIPRIL [Concomitant]
  11. AMLODIPINE [Concomitant]
  12. MOXONIDINE [Concomitant]

REACTIONS (3)
  - DIABETES MELLITUS [None]
  - HYPERTENSION [None]
  - WEIGHT INCREASED [None]
